FAERS Safety Report 8971790 (Version 1)
Quarter: 2012Q4

REPORT INFORMATION
  Report Type: 
  Country: IN (occurrence: IN)
  Receive Date: 20121211
  Receipt Date: 20121211
  Transmission Date: 20130627
  Serious: Yes (Other)
  Sender: FDA-Public Use
  Company Number: IN-ROXANE LABORATORIES, INC.-2012-RO-02526RO

PATIENT
  Age: 66 Year
  Sex: Female
  Weight: 49 kg

DRUGS (9)
  1. LITHIUM CARBONATE [Suspect]
     Indication: HYPERTHYROIDISM
     Dosage: 600 mg
  2. LITHIUM CARBONATE [Suspect]
     Dosage: 900 mg
  3. LITHIUM CARBONATE [Suspect]
     Dosage: 600 mg
  4. CLONAZEPAM [Concomitant]
     Dosage: 0.5 mg
  5. CINNARIZINE [Concomitant]
     Indication: SYNCOPE
     Dosage: 75 mg
  6. CINNARIZINE [Concomitant]
     Indication: DIZZINESS
  7. ROSUVASTATIN [Concomitant]
     Dosage: 10 mg
  8. TELMISARTAN AND AMLODIPINE COMBINATION [Concomitant]
  9. PANTOPRAZOLE [Concomitant]
     Dosage: 40 mg

REACTIONS (2)
  - Cardiotoxicity [Recovered/Resolved]
  - Neurotoxicity [Unknown]
